FAERS Safety Report 8766693 (Version 1)
Quarter: 2012Q4

REPORT INFORMATION
  Report Type: 
  Country: US (occurrence: US)
  Receive Date: 20120904
  Receipt Date: 20120904
  Transmission Date: 20130627
  Serious: Yes (Other)
  Sender: FDA-Public Use
  Company Number: US-JNJCP-30000125982

PATIENT
  Age: 9 Year
  Sex: Female
  Weight: 30 kg

DRUGS (2)
  1. CLEAN + CLEAR BLACKHEAD ERASER SCRUB [Suspect]
     Dosage: between pea and dime size amount, once a day in the evening
     Route: 001
     Dates: start: 201112
  2. NONE [Concomitant]

REACTIONS (3)
  - Foreign body [Recovered/Resolved]
  - Accidental exposure to product [Recovered/Resolved]
  - Ear pain [Unknown]
